FAERS Safety Report 12898102 (Version 1)
Quarter: 2016Q4

REPORT INFORMATION
  Report Type: Report from Study
  Country: VE (occurrence: VE)
  Receive Date: 20161031
  Receipt Date: 20161031
  Transmission Date: 20170207
  Serious: Yes (Death, Hospitalization, Other)
  Sender: FDA-Public Use
  Company Number: VE-ALEXION-A201608372

PATIENT
  Age: 50 Year
  Sex: Male

DRUGS (2)
  1. SOLIRIS [Suspect]
     Active Substance: ECULIZUMAB
     Dosage: 900 MG, Q2W
     Route: 042
     Dates: start: 20130813
  2. SOLIRIS [Suspect]
     Active Substance: ECULIZUMAB
     Indication: PAROXYSMAL NOCTURNAL HAEMOGLOBINURIA
     Dosage: 600 MG, QW
     Route: 042
     Dates: start: 20130627, end: 20130806

REACTIONS (14)
  - Pulmonary sepsis [Unknown]
  - Chronic kidney disease [Unknown]
  - Electrolyte imbalance [Unknown]
  - Respiratory tract infection [Unknown]
  - Purpura [Unknown]
  - Cardiac murmur [Unknown]
  - Atrial flutter [Unknown]
  - Anaemia [Unknown]
  - Splenomegaly [Unknown]
  - Oedema peripheral [Unknown]
  - Cardio-respiratory arrest [Fatal]
  - Haemoglobin decreased [Unknown]
  - Atrial tachycardia [Unknown]
  - Hypocalcaemia [Unknown]

NARRATIVE: CASE EVENT DATE: 20160518
